FAERS Safety Report 5754545-2 (Version None)
Quarter: 2008Q2

REPORT INFORMATION
  Report Type: 
  Country: None (occurrence: None)
  Receive Date: 20080530
  Receipt Date: 20080522
  Transmission Date: 20081010
  Serious: Yes (Life-Threatening)
  Sender: FDA-Public Use
  Company Number: JP-PFIZER INC-2008039960

PATIENT
  Sex: Male
  Weight: 58.5 kg

DRUGS (2)
  1. NORVASC [Suspect]
     Indication: HYPERTENSION
     Route: 048
     Dates: start: 20080331, end: 20080430
  2. FERROMIA [Concomitant]
     Route: 048

REACTIONS (1)
  - NEUTROPENIA [None]
